FAERS Safety Report 11568058 (Version 1)
Quarter: 2015Q3

REPORT INFORMATION
  Report Type: Spontaneous
  Country: US (occurrence: US)
  Receive Date: 20150916
  Receipt Date: 20150916
  Transmission Date: 20151125
  Serious: No
  Sender: FDA-Public Use
  Company Number: US-ELI_LILLY_AND_COMPANY-US200908001702

PATIENT
  Sex: Female

DRUGS (4)
  1. DIURETICS [Concomitant]
     Active Substance: UNSPECIFIED INGREDIENT
  2. TOPROL XL [Concomitant]
     Active Substance: METOPROLOL SUCCINATE
  3. LISINOPRIL. [Concomitant]
     Active Substance: LISINOPRIL
  4. FORTEO [Suspect]
     Active Substance: TERIPARATIDE

REACTIONS (6)
  - Arthralgia [Recovering/Resolving]
  - Headache [Recovering/Resolving]
  - Muscle spasms [Recovering/Resolving]
  - Pyrexia [Recovering/Resolving]
  - Gait disturbance [Recovering/Resolving]
  - Musculoskeletal stiffness [Recovering/Resolving]
